FAERS Safety Report 11371434 (Version 5)
Quarter: 2016Q3

REPORT INFORMATION
  Report Type: Spontaneous
  Country: US (occurrence: US)
  Receive Date: 20150812
  Receipt Date: 20160923
  Transmission Date: 20161109
  Serious: Yes (Hospitalization, Other)
  Sender: FDA-Public Use
  Company Number: US-ASTRAZENECA-2015SE75962

PATIENT
  Age: 668 Month
  Sex: Female
  Weight: 59 kg

DRUGS (17)
  1. SEROQUEL [Suspect]
     Active Substance: QUETIAPINE FUMARATE
     Indication: DEPRESSION
     Route: 048
  2. SEROQUEL [Suspect]
     Active Substance: QUETIAPINE FUMARATE
     Indication: SLEEP DISORDER
     Route: 048
     Dates: start: 2008, end: 2012
  3. SEROQUEL [Suspect]
     Active Substance: QUETIAPINE FUMARATE
     Indication: DEPRESSION
     Route: 048
  4. THORAZINE [Concomitant]
     Active Substance: CHLORPROMAZINE
  5. LAMICTAL XR [Suspect]
     Active Substance: LAMOTRIGINE
     Indication: SEIZURE
     Route: 048
     Dates: start: 2010, end: 2011
  6. LAMICTAL XR [Suspect]
     Active Substance: LAMOTRIGINE
     Indication: SEIZURE
     Dosage: UNKNOWN UNKNOWN
     Route: 048
  7. VIMPAT [Suspect]
     Active Substance: LACOSAMIDE
     Indication: SEIZURE
     Route: 065
  8. NEURONTIN [Suspect]
     Active Substance: GABAPENTIN
     Indication: SEIZURE
     Route: 065
  9. SEROQUEL [Suspect]
     Active Substance: QUETIAPINE FUMARATE
     Indication: SLEEP DISORDER
     Route: 048
  10. SEROQUEL [Suspect]
     Active Substance: QUETIAPINE FUMARATE
     Indication: SLEEP DISORDER
     Route: 048
  11. SEROQUEL [Suspect]
     Active Substance: QUETIAPINE FUMARATE
     Indication: DEPRESSION
     Route: 048
     Dates: start: 2008, end: 2012
  12. LAMICTAL XR [Suspect]
     Active Substance: LAMOTRIGINE
     Indication: SEIZURE
     Dosage: 1200.0MG UNKNOWN
     Route: 048
  13. TRILEPTAL [Suspect]
     Active Substance: OXCARBAZEPINE
     Indication: SEIZURE
     Route: 065
  14. DEPAKOTE [Suspect]
     Active Substance: DIVALPROEX SODIUM
     Indication: SEIZURE
     Route: 065
  15. ZONISAMIDE. [Suspect]
     Active Substance: ZONISAMIDE
     Indication: SEIZURE
     Route: 065
  16. NITROGLYCERIN. [Concomitant]
     Active Substance: NITROGLYCERIN
  17. ASPIRIN. [Concomitant]
     Active Substance: ASPIRIN

REACTIONS (46)
  - Insomnia [Unknown]
  - Postictal psychosis [Unknown]
  - Chest pain [Unknown]
  - Alopecia [Unknown]
  - Cystitis [Unknown]
  - Balance disorder [Unknown]
  - Constipation [Unknown]
  - Strabismus [Unknown]
  - Hyperhidrosis [Unknown]
  - Loss of consciousness [Unknown]
  - Coordination abnormal [Unknown]
  - Abdominal discomfort [Unknown]
  - Haemorrhage [Unknown]
  - Contusion [Unknown]
  - Joint injury [Unknown]
  - Ovarian cancer [Unknown]
  - Asthenia [Unknown]
  - Vomiting [Unknown]
  - Drug withdrawal syndrome [Unknown]
  - Myocardial infarction [Unknown]
  - Muscular weakness [Unknown]
  - Pallor [Unknown]
  - Irritability [Unknown]
  - Dizziness [Unknown]
  - Tremor [Unknown]
  - Gastritis [Unknown]
  - Off label use [Unknown]
  - Fall [Unknown]
  - Diplopia [Unknown]
  - Cognitive disorder [Unknown]
  - Infection [Unknown]
  - Electrocardiogram abnormal [Unknown]
  - Bipolar disorder [Unknown]
  - Product use issue [Unknown]
  - Amnesia [Unknown]
  - Fatigue [Unknown]
  - Drug dose omission [Unknown]
  - Confusional state [Unknown]
  - Nausea [Unknown]
  - Hypertonic bladder [Unknown]
  - Migraine [Unknown]
  - Drug ineffective [Unknown]
  - Mania [Unknown]
  - Logorrhoea [Unknown]
  - Bladder prolapse [Unknown]
  - Seizure [Not Recovered/Not Resolved]

NARRATIVE: CASE EVENT DATE: 201502
